FAERS Safety Report 7988182-6 (Version None)
Quarter: 2011Q4

REPORT INFORMATION
  Report Type: 
  Country: None (occurrence: None)
  Receive Date: 20111216
  Receipt Date: 20101214
  Transmission Date: 20120403
  Serious: No
  Sender: FDA-Public Use
  Company Number: US-BRISTOL-MYERS SQUIBB COMPANY-15440985

PATIENT
  Sex: Female

DRUGS (5)
  1. ABILIFY [Suspect]
     Dates: start: 20101213
  2. COGENTIN [Suspect]
  3. CLONAZEPAM [Concomitant]
  4. CYMBALTA [Concomitant]
  5. LAMICTAL [Concomitant]

REACTIONS (10)
  - DISCOMFORT [None]
  - FATIGUE [None]
  - MALAISE [None]
  - VISION BLURRED [None]
  - INSOMNIA [None]
  - HEADACHE [None]
  - VOMITING [None]
  - SPEECH DISORDER [None]
  - TREMOR [None]
  - ABDOMINAL DISCOMFORT [None]
